FAERS Safety Report 8549985-2 (Version None)
Quarter: 2012Q3

REPORT INFORMATION
  Report Type: 
  Country: None (occurrence: None)
  Receive Date: 20120730
  Receipt Date: 20120716
  Transmission Date: 20120928
  Serious: Yes (Other)
  Sender: FDA-Public Use
  Company Number: CN-ASTRAZENECA-2012SE53223

PATIENT
  Age: 7741 Day
  Sex: Female
  Weight: 75 kg

DRUGS (5)
  1. ABILIFY [Concomitant]
     Dates: start: 20091023
  2. SEROQUEL [Suspect]
     Route: 048
     Dates: start: 20091022
  3. ABILIFY [Concomitant]
     Dosage: WAS ADJUSTED TO 5-7.5 MG
     Dates: start: 20091022
  4. SEROQUEL [Suspect]
     Indication: BORDERLINE PERSONALITY DISORDER
     Route: 048
     Dates: start: 20090105
  5. ABILIFY [Concomitant]
     Dates: start: 20091016

REACTIONS (7)
  - RETCHING [None]
  - FALL [None]
  - BLOOD GLUCOSE INCREASED [None]
  - ABDOMINAL DISCOMFORT [None]
  - BLOOD PRESSURE INCREASED [None]
  - UNRESPONSIVE TO STIMULI [None]
  - EXTRAPYRAMIDAL DISORDER [None]
